FAERS Safety Report 12481591 (Version 2)
Quarter: 2016Q3

REPORT INFORMATION
  Report Type: Spontaneous
  Country: US (occurrence: US)
  Receive Date: 20160620
  Receipt Date: 20160718
  Transmission Date: 20161109
  Serious: Yes (Other)
  Sender: FDA-Public Use
  Company Number: US-PFIZER INC-2016303596

PATIENT
  Age: 21 Year
  Sex: Female
  Weight: 70.31 kg

DRUGS (4)
  1. GABAPENTIN. [Suspect]
     Active Substance: GABAPENTIN
     Indication: MIGRAINE
     Dosage: 300 MG, 1X/DAY
     Dates: start: 201405
  2. ATIVAN [Concomitant]
     Active Substance: LORAZEPAM
     Indication: ANXIETY
     Dosage: 2MG ONCE A DAY
     Dates: start: 201410
  3. ATIVAN [Concomitant]
     Active Substance: LORAZEPAM
     Dosage: 2 MG, AS NEEDED
     Dates: start: 201410
  4. GABAPENTIN. [Suspect]
     Active Substance: GABAPENTIN
     Dosage: 1800 MG, DAILY

REACTIONS (8)
  - Therapeutic response unexpected [Unknown]
  - Suicide attempt [Recovered/Resolved]
  - Poisoning [Unknown]
  - Victim of sexual abuse [Unknown]
  - Abortion spontaneous [Unknown]
  - Drug intolerance [Unknown]
  - Pre-existing condition improved [Unknown]
  - Product use issue [Unknown]

NARRATIVE: CASE EVENT DATE: 2014
